FAERS Safety Report 7580388-3 (Version None)
Quarter: 2011Q2

REPORT INFORMATION
  Report Type: 
  Country: None (occurrence: None)
  Receive Date: 20110629
  Receipt Date: 20110620
  Transmission Date: 20111010
  Serious: Yes (Death)
  Sender: FDA-Public Use
  Company Number: LU-ROCHE-784451

PATIENT
  Age: 61 Year
  Sex: Male
  Weight: 105 kg

DRUGS (5)
  1. IRBESARTAN [Concomitant]
     Indication: BENIGN PROSTATIC HYPERPLASIA
     Route: 048
     Dates: start: 20070401, end: 20090101
  2. TACROLIMUS [Concomitant]
     Indication: RENAL TRANSPLANT
     Route: 048
     Dates: start: 20070401, end: 20081201
  3. INSULINE [Concomitant]
     Dosage: 40 + 20 UNITS
     Route: 058
     Dates: start: 20070401, end: 20090101
  4. PREDNISONE [Concomitant]
     Indication: RENAL TRANSPLANT
     Route: 048
     Dates: start: 20070401, end: 20081201
  5. CELLCEPT [Suspect]
     Indication: RENAL TRANSPLANT
     Route: 048
     Dates: start: 20070401, end: 20081201

REACTIONS (1)
  - LYMPHOMA [None]
